FAERS Safety Report 15656660 (Version 5)
Quarter: 2022Q2

REPORT INFORMATION
  Report Type: Spontaneous
  Country: US (occurrence: US)
  Receive Date: 20181126
  Receipt Date: 20220503
  Transmission Date: 20220721
  Serious: Yes (Other)
  Sender: FDA-Public Use
  Company Number: US-PFIZER INC-2018483251

PATIENT
  Age: 10 Year
  Sex: Male
  Weight: 64 kg

DRUGS (1)
  1. BENEFIX [Suspect]
     Active Substance: COAGULATION FACTOR IX RECOMBINANT HUMAN\ISOPROPYL ALCOHOL
     Indication: Haemorrhage
     Dosage: 6400 UNITS (+5%) = 100 UNITS/KG DAILY X 1 DOSE FOR BLEEDS ON DEMAND

REACTIONS (1)
  - Haemorrhage [Unknown]
